FAERS Safety Report 22839456 (Version 6)
Quarter: 2025Q3

REPORT INFORMATION
  Report Type: Report from Study
  Country: JP (occurrence: JP)
  Receive Date: 20230818
  Receipt Date: 20250810
  Transmission Date: 20251021
  Serious: Yes (Hospitalization, Other)
  Sender: ALEXION PHARMACEUTICALS
  Company Number: 2023A172318

PATIENT
  Age: 62 Year
  Sex: Male
  Weight: 47 kg

DRUGS (8)
  1. DURVALUMAB [Suspect]
     Active Substance: DURVALUMAB
     Indication: Non-small cell lung cancer
     Dosage: 1500 MILLIGRAM, Q3W
     Dates: start: 20230524, end: 20230725
  2. DURVALUMAB [Suspect]
     Active Substance: DURVALUMAB
     Dates: start: 20230920, end: 20231017
  3. TREMELIMUMAB [Suspect]
     Active Substance: TREMELIMUMAB
     Indication: Non-small cell lung cancer
     Dosage: 75 MILLIGRAM, Q3W
     Dates: start: 20230524, end: 20230725
  4. TREMELIMUMAB [Suspect]
     Active Substance: TREMELIMUMAB
     Dosage: 75 MILLIGRAM, Q3W
     Dates: start: 20230920, end: 20230920
  5. ABRAXANE [Suspect]
     Active Substance: PACLITAXEL
     Indication: Non-small cell lung cancer
     Route: 065
     Dates: start: 20230524, end: 20230718
  6. ABRAXANE [Suspect]
     Active Substance: PACLITAXEL
     Dosage: 150 MILLIGRAM, QD
     Route: 065
     Dates: start: 20230725, end: 20230725
  7. CARBOPLATIN [Suspect]
     Active Substance: CARBOPLATIN
     Indication: Non-small cell lung cancer
     Route: 065
     Dates: start: 20230524, end: 20230704
  8. CARBOPLATIN [Suspect]
     Active Substance: CARBOPLATIN
     Route: 065
     Dates: start: 20230725, end: 20230725

REACTIONS (10)
  - Decreased appetite [Recovered/Resolved]
  - Pneumothorax [Recovered/Resolved]
  - Alopecia [Recovered/Resolved]
  - Diarrhoea [Recovered/Resolved]
  - Pyrexia [Recovered/Resolved]
  - Anaemia [Recovered/Resolved]
  - C-reactive protein increased [Recovered/Resolved]
  - Adrenal insufficiency [Recovered/Resolved]
  - Constipation [Recovered/Resolved]
  - Haemorrhage subcutaneous [Recovered/Resolved]

NARRATIVE: CASE EVENT DATE: 20230601
